FAERS Safety Report 13342080 (Version 1)
Quarter: 2017Q1

REPORT INFORMATION
  Report Type: Spontaneous
  Country: US (occurrence: US)
  Receive Date: 20170316
  Receipt Date: 20170316
  Transmission Date: 20170428
  Serious: No
  Sender: FDA-Public Use
  Company Number: US-WARNER CHILCOTT, LLC-1064295

PATIENT
  Age: 86 Year
  Sex: Female

DRUGS (9)
  1. PROBIOTICS NOS [Concomitant]
     Active Substance: PROBIOTICS NOS
  2. GABAPENTIN. [Concomitant]
     Active Substance: GABAPENTIN
  3. ULORIC [Concomitant]
     Active Substance: FEBUXOSTAT
  4. FUROSEMIDE. [Concomitant]
     Active Substance: FUROSEMIDE
  5. CEFADROXIL. [Concomitant]
     Active Substance: CEFADROXIL
  6. COLCHICINE. [Concomitant]
     Active Substance: COLCHICINE
  7. COUMADIN [Concomitant]
     Active Substance: WARFARIN SODIUM
  8. VITAMIN D [Concomitant]
     Active Substance: CHOLECALCIFEROL
  9. DELZICOL [Suspect]
     Active Substance: MESALAMINE
     Indication: CROHN^S DISEASE
     Route: 048
     Dates: start: 2014

REACTIONS (8)
  - Crohn^s disease [Recovered/Resolved]
  - Feeling abnormal [Recovered/Resolved]
  - Mucous stools [Recovered/Resolved]
  - Diarrhoea [Recovered/Resolved]
  - Flatulence [Recovered/Resolved]
  - Nausea [Recovered/Resolved]
  - Abdominal discomfort [Recovered/Resolved]
  - Dyspepsia [Recovered/Resolved]

NARRATIVE: CASE EVENT DATE: 201608
